FAERS Safety Report 9221698 (Version 2)
Quarter: 2013Q2

REPORT INFORMATION
  Report Type: Spontaneous
  Country: DE (occurrence: None)
  Receive Date: 20130408
  Receipt Date: 20130418
  Transmission Date: 20140414
  Serious: Yes (Hospitalization)
  Sender: FDA-Public Use
  Company Number: UTC-031027

PATIENT
  Age: 58 Year
  Sex: Female

DRUGS (1)
  1. REMODULIN [Suspect]
     Indication: PULMONARY ARTERIAL HYPERTENSION
     Dosage: OVER 100 MG, SUBCUTANEOUS 1 MIN
     Route: 058

REACTIONS (18)
  - Circulatory collapse [None]
  - Arrhythmia supraventricular [None]
  - Ventricular tachycardia [None]
  - Psychomotor hyperactivity [None]
  - Dyspnoea [None]
  - Flushing [None]
  - Agitation [None]
  - Pain [None]
  - Overdose [None]
  - Incorrect route of drug administration [None]
  - Accidental overdose [None]
  - Oxygen saturation decreased [None]
  - PO2 decreased [None]
  - PCO2 decreased [None]
  - Blood creatinine increased [None]
  - Respiratory rate increased [None]
  - Ventricular extrasystoles [None]
  - Central venous pressure increased [None]
